FAERS Safety Report 7699662-5 (Version None)
Quarter: 2011Q3

REPORT INFORMATION
  Report Type: 
  Country: None (occurrence: None)
  Receive Date: 20110822
  Receipt Date: 20110808
  Transmission Date: 20111222
  Serious: No
  Sender: FDA-Public Use
  Company Number: US-BIOGENIDEC-2011BI029895

PATIENT
  Age: 45 Year
  Sex: Male

DRUGS (3)
  1. COPAXONE [Concomitant]
  2. STEROIDS [Concomitant]
  3. TYSABRI [Suspect]
     Indication: MULTIPLE SCLEROSIS
     Route: 042
     Dates: start: 20110106

REACTIONS (6)
  - BACK PAIN [None]
  - ANGER [None]
  - MUSCLE SPASMS [None]
  - PAIN IN EXTREMITY [None]
  - BALANCE DISORDER [None]
  - HEADACHE [None]
